FAERS Safety Report 8222409-0 (Version None)
Quarter: 2012Q1

REPORT INFORMATION
  Report Type: 
  Country: None (occurrence: None)
  Receive Date: 20120320
  Receipt Date: 20120312
  Transmission Date: 20120608
  Serious: Yes (Hospitalization)
  Sender: FDA-Public Use
  Company Number: US-BAYER-2011-075682

PATIENT
  Age: 25 Year
  Sex: Female
  Weight: 86.168 kg

DRUGS (1)
  1. DROSPIRENONE AND ETHINYL ESTRADIOL [Suspect]
     Indication: CONTRACEPTION
     Dosage: UNK
     Dates: start: 20090401, end: 20090901

REACTIONS (4)
  - EMOTIONAL DISTRESS [None]
  - PAIN [None]
  - CHOLECYSTITIS [None]
  - BILIARY COLIC [None]
